FAERS Safety Report 18213591 (Version 8)
Quarter: 2021Q4

REPORT INFORMATION
  Report Type: Spontaneous
  Country: US (occurrence: US)
  Receive Date: 20200831
  Receipt Date: 20211001
  Transmission Date: 20220303
  Serious: Yes (Other)
  Sender: FDA-Public Use
  Company Number: US-PFIZER INC-2020335940

PATIENT
  Age: 77 Year
  Sex: Female

DRUGS (5)
  1. IBRANCE [Suspect]
     Active Substance: PALBOCICLIB
     Indication: Breast cancer female
     Dosage: 100 MG, CYCLIC (1X/DAY FOR 21 DAYS EVERY 28 DAYS)
     Dates: start: 20190503
  2. IBRANCE [Suspect]
     Active Substance: PALBOCICLIB
     Dosage: 100 MG, CYCLIC (1 TAB PO QD FOR 14 DAYS, THEN 14 DAYS OFF).
     Route: 048
     Dates: start: 20190503
  3. IBRANCE [Suspect]
     Active Substance: PALBOCICLIB
     Dosage: 100 MG, CYCLIC (1X/DAY, 14 DAYS ON, 14 DAYS OFF)
     Dates: start: 20200417
  4. GABAPENTIN [Concomitant]
     Active Substance: GABAPENTIN
     Dosage: UNK
  5. AMITRIPTYLINE [Concomitant]
     Active Substance: AMITRIPTYLINE
     Dosage: UNK

REACTIONS (9)
  - Neuropathy peripheral [Unknown]
  - Hypoaesthesia [Unknown]
  - Poor quality sleep [Unknown]
  - White blood cell count decreased [Unknown]
  - Fatigue [Recovered/Resolved]
  - Oral pain [Unknown]
  - Insomnia [Not Recovered/Not Resolved]
  - Stomatitis [Recovered/Resolved]
  - Nerve injury [Not Recovered/Not Resolved]

NARRATIVE: CASE EVENT DATE: 20190501
